FAERS Safety Report 4380215-1 (Version None)
Quarter: 2004Q2

REPORT INFORMATION
  Report Type: 
  Country: None (occurrence: None)
  Receive Date: 20040601
  Receipt Date: 20040310
  Transmission Date: 20050107
  Serious: Yes (Disabling)
  Sender: FDA-Public Use
  Company Number: WAES 0403USA01053

PATIENT
  Sex: Female

DRUGS (7)
  1. ZETIA [Suspect]
     Indication: BLOOD CHOLESTEROL INCREASED
     Dosage: 10 MG/DAILY/PO
     Route: 048
     Dates: start: 20031201, end: 20040310
  2. LIPITOR [Suspect]
     Dates: end: 20040101
  3. GLUCOPHAGE [Concomitant]
  4. FUROSEMIDE [Concomitant]
  5. INSULIN [Concomitant]
  6. LISINOPRIL [Concomitant]
  7. METOPROLOL TARTRATE [Concomitant]

REACTIONS (2)
  - ARTHRITIS [None]
  - MYALGIA [None]
